FAERS Safety Report 18118899 (Version 2)
Quarter: 2021Q2

REPORT INFORMATION
  Report Type: Spontaneous
  Country: CA (occurrence: CA)
  Receive Date: 20200806
  Receipt Date: 20210513
  Transmission Date: 20210717
  Serious: Yes (Life-Threatening, Hospitalization, Other)
  Sender: FDA-Public Use
  Company Number: CA-PFIZER INC-2020296330

PATIENT
  Age: 77 Year
  Sex: Male

DRUGS (30)
  1. HEPARIN SODIUM. [Concomitant]
     Active Substance: HEPARIN SODIUM
     Dosage: 3 ML, DAILY
     Dates: start: 20191004
  2. ALBUMIN (HUMAN) [Concomitant]
     Active Substance: ALBUMIN HUMAN
     Dosage: 5 % 250 ML
     Route: 042
  3. CRESTOR [Concomitant]
     Active Substance: ROSUVASTATIN CALCIUM
     Dosage: 20 MG AT BED TIME
     Route: 048
     Dates: start: 20191005
  4. ZOFRAN [Concomitant]
     Active Substance: ONDANSETRON HYDROCHLORIDE
     Dosage: 4 MG, AS NEEDED
     Route: 042
     Dates: start: 20191004
  5. DILANTIN [Concomitant]
     Active Substance: PHENYTOIN
     Dosage: 100 MG, 3X/DAY
     Route: 042
  6. DIPRIVAN [Concomitant]
     Active Substance: PROPOFOL
     Dosage: 50 ML
     Route: 042
     Dates: start: 20191005
  7. HUMULIN R [Concomitant]
     Active Substance: INSULIN HUMAN
     Dosage: 50U/250ML
     Route: 042
     Dates: start: 20191004
  8. MAGNESIUM [Concomitant]
     Active Substance: MAGNESIUM
     Dosage: 5 MG EVERY 5 HOURS
     Route: 042
  9. MAXERAN [Concomitant]
     Active Substance: METOCLOPRAMIDE HYDROCHLORIDE
     Dosage: 5 MG EVERY 8 HOURS
     Route: 042
     Dates: start: 20191007
  10. SOLU?CORTEF [Concomitant]
     Active Substance: HYDROCORTISONE SODIUM SUCCINATE
     Dosage: 25 MG EVERY 6 HOURS
     Route: 030
     Dates: start: 20191007
  11. HEPARIN [Concomitant]
     Active Substance: HEPARIN SODIUM
     Dosage: 5000 U/0.5ML, EVERY 12 HOURS
     Route: 058
  12. PHENYTOIN SODIUM. [Suspect]
     Active Substance: PHENYTOIN SODIUM
     Dosage: 1000 MG (BOLUS)
     Route: 042
  13. KEPPRA [Concomitant]
     Active Substance: LEVETIRACETAM
     Dosage: 500 MG, 2X/DAY
     Dates: start: 20191005
  14. POTASSIUM CHLORIDE. [Concomitant]
     Active Substance: POTASSIUM CHLORIDE
     Dosage: 10 MEQ
  15. VIMPAT [Concomitant]
     Active Substance: LACOSAMIDE
     Dosage: 50 MG EVERY 12 HOURS
     Route: 042
     Dates: start: 20191005
  16. PHENYTOIN SODIUM. [Suspect]
     Active Substance: PHENYTOIN SODIUM
     Dosage: 400 MG (BOLUS)
     Route: 042
  17. TYLENOL [Concomitant]
     Active Substance: ACETAMINOPHEN
     Dosage: 650 MG EVERY 6 HOURS
     Route: 048
     Dates: start: 20191004
  18. SUBLIMAZE [Concomitant]
     Active Substance: FENTANYL CITRATE
     Dosage: 500 UG
     Route: 042
     Dates: start: 20191005
  19. THIAMINE. [Concomitant]
     Active Substance: THIAMINE
     Dosage: 200 MG, 2X/DAY
     Route: 042
     Dates: start: 20191005
  20. LEVOPHED [Concomitant]
     Active Substance: NOREPINEPHRINE BITARTRATE
     Dosage: 8 MG
     Route: 042
     Dates: start: 20191004
  21. PHENYTOIN SODIUM. [Suspect]
     Active Substance: PHENYTOIN SODIUM
     Indication: EPILEPSY
     Dosage: 200 MG, EVERY 6 HOURS
     Route: 042
  22. VERSED [Concomitant]
     Active Substance: MIDAZOLAM HYDROCHLORIDE
     Dosage: 50 MG
     Route: 042
     Dates: start: 20191005
  23. PEPTAMEN [Concomitant]
     Dosage: 1.5 AT 30 CC/H
  24. PANTOLOC [PANTOPRAZOLE] [Concomitant]
     Active Substance: PANTOPRAZOLE SODIUM
     Dosage: 40 MG, DAILY
     Route: 042
     Dates: start: 20191004
  25. ASAPHEN [Concomitant]
     Active Substance: ASPIRIN
     Dosage: 80 MG, DAILY
     Dates: start: 20191004
  26. TAZOCIN [Concomitant]
     Active Substance: PIPERACILLIN SODIUM\TAZOBACTAM SODIUM
     Dosage: 3.375 G EVERY 6 HOURS
     Route: 042
     Dates: start: 20191005
  27. PERIDEX [CHLORHEXIDINE GLUCONATE] [Concomitant]
     Dosage: 15 MG, 2X/DAY
     Route: 048
     Dates: start: 20191004
  28. INTROPIN [Concomitant]
     Active Substance: DOPAMINE HYDROCHLORIDE
     Dosage: 2 MG/KG/MIN
     Route: 042
     Dates: start: 20191005
  29. VANCOMYCIN [Concomitant]
     Active Substance: VANCOMYCIN
     Dosage: 1000 MG EVERY 24 HOURS
     Route: 042
     Dates: start: 20191005
  30. PRESSYN [Concomitant]
     Dosage: 40 IU
     Route: 042
     Dates: start: 20191005

REACTIONS (4)
  - Toxicity to various agents [Unknown]
  - Coma [Unknown]
  - Tremor [Unknown]
  - Seizure [Unknown]

NARRATIVE: CASE EVENT DATE: 20191008
